FAERS Safety Report 7488744-9 (Version None)
Quarter: 2011Q2

REPORT INFORMATION
  Report Type: 
  Country: None (occurrence: None)
  Receive Date: 20110511
  Receipt Date: 20100712
  Transmission Date: 20111010
  Serious: Yes (Hospitalization, Other)
  Sender: FDA-Public Use
  Company Number: 2523595-2011-000015

PATIENT
  Age: 68 Year
  Sex: Male
  Weight: 80 kg

DRUGS (1)
  1. UVADEX [Suspect]
     Dosage: PER ECP TREATMENT

REACTIONS (1)
  - DEEP VEIN THROMBOSIS [None]
